FAERS Safety Report 11362878 (Version 1)
Quarter: 2015Q3

REPORT INFORMATION
  Report Type: Spontaneous
  Country: US (occurrence: US)
  Receive Date: 20150810
  Receipt Date: 20150810
  Transmission Date: 20151125
  Serious: No
  Sender: FDA-Public Use
  Company Number: US-GLAXOSMITHKLINE-US2012000220

PATIENT

DRUGS (2)
  1. NICORETTE FRESH MINT [Suspect]
     Active Substance: NICOTINE
  2. NICORETTE FRESH MINT [Suspect]
     Active Substance: NICOTINE
     Indication: SMOKING CESSATION THERAPY

REACTIONS (1)
  - Nicotine dependence [Unknown]
